FAERS Safety Report 12893814 (Version 1)
Quarter: 2016Q4

REPORT INFORMATION
  Report Type: Spontaneous
  Country: FR (occurrence: FR)
  Receive Date: 20161028
  Receipt Date: 20161028
  Transmission Date: 20170207
  Serious: Yes (Disabling)
  Sender: FDA-Public Use
  Company Number: FR-TEVA-706107ROM

PATIENT
  Age: 33 Year
  Sex: Female

DRUGS (4)
  1. INEXIUM [Concomitant]
     Active Substance: ESOMEPRAZOLE
  2. ANDROCUR 100 MG [Suspect]
     Active Substance: CYPROTERONE ACETATE
     Indication: ACNE
     Dosage: 1 DOSAGE FORMS DAILY; 1 TABLET PER DAY DURING 20 DAYS PER MONTH
     Route: 048
     Dates: end: 201608
  3. ANAUSIN METOCLOPRAMIDE [Concomitant]
     Active Substance: METOCLOPRAMIDE HYDROCHLORIDE
  4. ETHINYLESTRADIOL W/LEVONORGESTREL [Suspect]
     Active Substance: ETHINYL ESTRADIOL\LEVONORGESTREL
     Indication: CONTRACEPTION
     Route: 048
     Dates: end: 201608

REACTIONS (4)
  - Partial seizures [Recovered/Resolved]
  - Headache [Recovered/Resolved]
  - Cerebral venous thrombosis [Recovered/Resolved with Sequelae]
  - Haemorrhagic cerebral infarction [Recovered/Resolved with Sequelae]

NARRATIVE: CASE EVENT DATE: 20160826
